FAERS Safety Report 6162773-X (Version None)
Quarter: 2009Q2

REPORT INFORMATION
  Report Type: 
  Country: None (occurrence: None)
  Receive Date: 20090421
  Receipt Date: 20080822
  Transmission Date: 20091009
  Serious: No
  Sender: FDA-Public Use
  Company Number: US-ASTRAZENECA-2008UW12539

PATIENT
  Age: 64 Year
  Sex: Male
  Weight: 72.6 kg

DRUGS (10)
  1. TOPROL-XL [Suspect]
     Indication: HYPERTENSION
     Route: 048
     Dates: start: 20040101
  2. TOPROL-XL [Suspect]
     Route: 048
     Dates: start: 20080601
  3. TOPROL-XL [Suspect]
     Route: 048
  4. SYNTHROID [Concomitant]
  5. CRESTOR [Concomitant]
     Route: 048
  6. PREVACID [Concomitant]
  7. ASPIRIN [Concomitant]
  8. ALTACE [Concomitant]
  9. NORVASC [Concomitant]
  10. TERAZOSIN HCL [Concomitant]

REACTIONS (5)
  - BLOOD PRESSURE INADEQUATELY CONTROLLED [None]
  - BLOOD PRESSURE INCREASED [None]
  - FLUSHING [None]
  - HEADACHE [None]
  - HEART RATE INCREASED [None]
